FAERS Safety Report 6956657-4 (Version None)
Quarter: 2010Q3

REPORT INFORMATION
  Report Type: 
  Country: None (occurrence: None)
  Receive Date: 20100830
  Receipt Date: 20100817
  Transmission Date: 20110219
  Serious: No
  Sender: FDA-Public Use
  Company Number: US-PFIZER INC-2010104238

PATIENT
  Sex: Female

DRUGS (1)
  1. XALATAN [Suspect]
     Indication: INTRAOCULAR PRESSURE INCREASED
     Dosage: UNK
     Route: 048
     Dates: start: 20081201

REACTIONS (4)
  - DRY EYE [None]
  - EYE DISCHARGE [None]
  - EYE IRRITATION [None]
  - EYE PRURITUS [None]
